FAERS Safety Report 13338861 (Version 1)
Quarter: 2017Q1

REPORT INFORMATION
  Report Type: Spontaneous
  Country: PK (occurrence: PK)
  Receive Date: 20170315
  Receipt Date: 20170315
  Transmission Date: 20170428
  Serious: Yes (Death, Other)
  Sender: FDA-Public Use
  Company Number: PK-TURING PHARMACEUTICALS-2015TNG00028

PATIENT

DRUGS (2)
  1. PYRIMETHAMINE [Suspect]
     Active Substance: PYRIMETHAMINE
     Indication: ACCIDENTAL EXPOSURE TO PRODUCT
     Dosage: 50 MG
     Route: 048
     Dates: start: 20111201
  2. ISOTAB-20 (ISOSORBIDE DINITRATE) [Concomitant]

REACTIONS (45)
  - Pyrexia [Unknown]
  - Abdominal pain [Unknown]
  - Epistaxis [Unknown]
  - Gingival bleeding [Unknown]
  - Hiccups [Unknown]
  - Dysaesthesia [Unknown]
  - Toxic epidermal necrolysis [Unknown]
  - Toxicity to various agents [Fatal]
  - Myalgia [Unknown]
  - Petechiae [Unknown]
  - Constipation [Unknown]
  - Dyspnoea [Unknown]
  - Hepatic enzyme increased [Unknown]
  - Skin hyperpigmentation [Unknown]
  - Irritability [Unknown]
  - Rash maculo-papular [Unknown]
  - Ecchymosis [Unknown]
  - Accidental exposure to product [Fatal]
  - Vomiting [Unknown]
  - Cough [Unknown]
  - Melaena [Unknown]
  - Haematemesis [Unknown]
  - Haematuria [Unknown]
  - Ear haemorrhage [Unknown]
  - Myelodysplastic syndrome [Unknown]
  - Anaemia megaloblastic [Unknown]
  - Pruritus [Unknown]
  - Arthralgia [Unknown]
  - Peritoneal haemorrhage [Unknown]
  - Dysuria [Unknown]
  - Liver disorder [Unknown]
  - Oropharyngeal pain [Unknown]
  - Purpura [Unknown]
  - Conjunctival haemorrhage [Unknown]
  - Periorbital haematoma [Unknown]
  - Xerosis [Unknown]
  - Hyperbilirubinaemia [Unknown]
  - Anaemia [Unknown]
  - Haemoptysis [Unknown]
  - Thrombocytopenia [Unknown]
  - Diarrhoea [Unknown]
  - Mouth ulceration [Unknown]
  - Scratch [Unknown]
  - Leukopenia [Unknown]
  - Product contamination [Fatal]

NARRATIVE: CASE EVENT DATE: 2011
